FAERS Safety Report 24930350 (Version 3)
Quarter: 2025Q1

REPORT INFORMATION
  Report Type: Spontaneous
  Country: JP (occurrence: JP)
  Receive Date: 20250205
  Receipt Date: 20250305
  Transmission Date: 20250409
  Serious: Yes (Hospitalization)
  Sender: EISAI
  Company Number: JP-Eisai-202103075_LEN-TMC_P_1

PATIENT
  Age: 73 Year
  Sex: Female

DRUGS (4)
  1. LENVIMA [Suspect]
     Active Substance: LENVATINIB
     Indication: Malignant neoplasm of thymus
     Route: 048
     Dates: start: 20210412, end: 20210425
  2. LENVIMA [Suspect]
     Active Substance: LENVATINIB
     Dates: start: 20210426, end: 20210509
  3. LENVIMA [Suspect]
     Active Substance: LENVATINIB
     Dates: start: 20210510, end: 20210519
  4. LENVIMA [Suspect]
     Active Substance: LENVATINIB
     Dates: start: 20210526, end: 20210530

REACTIONS (4)
  - Cardiomyopathy [Not Recovered/Not Resolved]
  - Platelet count decreased [Unknown]
  - Hypothyroidism [Unknown]
  - Aplasia pure red cell [Unknown]

NARRATIVE: CASE EVENT DATE: 20210518
